FAERS Safety Report 6337640-9 (Version None)
Quarter: 2009Q3

REPORT INFORMATION
  Report Type: 
  Country: None (occurrence: None)
  Receive Date: 20090902
  Receipt Date: 20090828
  Transmission Date: 20100115
  Serious: Yes (Other)
  Sender: FDA-Public Use
  Company Number: US-BAYER-200930405GPV

PATIENT

DRUGS (2)
  1. SORAFENIB [Suspect]
     Indication: MALIGNANT MELANOMA
  2. MELPHALAN HYDROCHLORIDE [Concomitant]
     Indication: MALIGNANT MELANOMA
     Route: 042

REACTIONS (1)
  - BLOOD CREATINE PHOSPHOKINASE INCREASED [None]
